FAERS Safety Report 8799259 (Version 1)
Quarter: 2012Q4

REPORT INFORMATION
  Report Type: Spontaneous
  Country: DE (occurrence: None)
  Receive Date: 20120914
  Receipt Date: 20120914
  Transmission Date: 20130627
  Serious: Yes (Other)
  Sender: FDA-Public Use
  Company Number: 1395332

PATIENT
  Age: 57 Year
  Sex: Female
  Weight: 53 kg

DRUGS (6)
  1. OXALIPLATIN [Suspect]
     Indication: DRUG USE FOR UNKNOWN INDICATION
     Route: 041
     Dates: start: 20120702
  2. OXALIPLATIN [Suspect]
     Indication: DRUG USE FOR UNKNOWN INDICATION
     Route: 041
     Dates: start: 20120802
  3. GLUCOSE [Suspect]
     Indication: MEDICATION DILUTION
     Route: 041
  4. FLUOROURACIL [Concomitant]
  5. LEUCOVORIN [Concomitant]
  6. IRINOTECAN [Concomitant]

REACTIONS (1)
  - Anaphylactic reaction [None]
